FAERS Safety Report 8542522-8 (Version None)
Quarter: 2012Q3

REPORT INFORMATION
  Report Type: 
  Country: None (occurrence: None)
  Receive Date: 20120726
  Receipt Date: 20110811
  Transmission Date: 20120928
  Serious: Yes (Other)
  Sender: FDA-Public Use
  Company Number: US-ASTRAZENECA-2011SE48011

PATIENT
  Sex: Female

DRUGS (4)
  1. SEROQUEL XR [Suspect]
     Dosage: 800 MG ON AND OFF
     Route: 048
     Dates: start: 20090101
  2. SEROQUEL XR [Suspect]
     Route: 048
  3. SEROQUEL XR [Suspect]
     Route: 048
  4. SEROQUEL XR [Suspect]
     Route: 048

REACTIONS (2)
  - JOINT DISLOCATION [None]
  - CONVULSION [None]
